FAERS Safety Report 10575951 (Version 1)
Quarter: 2014Q4

REPORT INFORMATION
  Report Type: Spontaneous
  Country: US (occurrence: None)
  Receive Date: 20141110
  Receipt Date: 20141110
  Transmission Date: 20150529
  Serious: No
  Sender: FDA-Public Use
  Company Number: None

PATIENT
  Age: 74 Year
  Sex: Male
  Weight: 104 kg

DRUGS (3)
  1. GENTAMICIN. [Concomitant]
     Active Substance: GENTAMICIN
  2. SOLU-MEDROL [Concomitant]
     Active Substance: METHYLPREDNISOLONE SODIUM SUCCINATE
  3. GENAMICIN [Suspect]
     Active Substance: GENTAMICIN
     Indication: PNEUMONIA
     Dates: start: 20140518, end: 20140519

REACTIONS (3)
  - Ear swelling [None]
  - Swelling face [None]
  - Infusion related reaction [None]

NARRATIVE: CASE EVENT DATE: 20140519
